FAERS Safety Report 23070443 (Version 1)
Quarter: 2023Q4

REPORT INFORMATION
  Report Type: Report from Study
  Country: BR (occurrence: BR)
  Receive Date: 20231016
  Receipt Date: 20231016
  Transmission Date: 20240109
  Serious: Yes (Other)
  Sender: FDA-Public Use
  Company Number: BR-002147023-NVSC2023BR222031

PATIENT
  Sex: Female

DRUGS (2)
  1. RIBOCICLIB [Suspect]
     Active Substance: RIBOCICLIB
     Indication: Breast cancer
     Route: 065
  2. RIBOCICLIB [Suspect]
     Active Substance: RIBOCICLIB
     Dosage: 1 TABLET, QD
     Route: 065
     Dates: start: 20230929

REACTIONS (9)
  - Immunodeficiency [Recovered/Resolved]
  - Renal impairment [Unknown]
  - Malaise [Unknown]
  - Hepatic function abnormal [Unknown]
  - Alopecia [Recovered/Resolved]
  - Decreased appetite [Not Recovered/Not Resolved]
  - Fatigue [Unknown]
  - Blood test abnormal [Recovered/Resolved]
  - Taste disorder [Not Recovered/Not Resolved]
